FAERS Safety Report 19909065 (Version 1)
Quarter: 2021Q4

REPORT INFORMATION
  Report Type: Spontaneous
  Country: US (occurrence: US)
  Receive Date: 20211001
  Receipt Date: 20211001
  Transmission Date: 20220303
  Serious: No
  Sender: FDA-Public Use
  Company Number: US-AMARIN PHARMA, INC.-2020AMR000898

PATIENT
  Age: 67 Year
  Sex: Male
  Weight: 77.18 kg

DRUGS (3)
  1. VASCEPA [Suspect]
     Active Substance: ICOSAPENT ETHYL
     Indication: Blood cholesterol increased
     Route: 048
  2. NEXIUM [Concomitant]
     Active Substance: ESOMEPRAZOLE MAGNESIUM
     Indication: Gastrooesophageal reflux disease
     Dates: start: 2016
  3. EZETIMIBE [Concomitant]
     Active Substance: EZETIMIBE
     Indication: Blood cholesterol increased

REACTIONS (2)
  - Nausea [Recovered/Resolved]
  - Product odour abnormal [Unknown]

NARRATIVE: CASE EVENT DATE: 20201221
